FAERS Safety Report 22085608 (Version 1)
Quarter: 2023Q1

REPORT INFORMATION
  Report Type: Spontaneous
  Country: US (occurrence: US)
  Receive Date: 20230310
  Receipt Date: 20230310
  Transmission Date: 20230418
  Serious: No
  Sender: FDA-Public Use
  Company Number: US-SA-SAC20230307001025

PATIENT
  Age: 2 Month
  Sex: Male
  Weight: 11.79 kg

DRUGS (1)
  1. DUPIXENT [Suspect]
     Active Substance: DUPILUMAB
     Indication: Eczema
     Dosage: 200 MG, Q4W
     Route: 058

REACTIONS (3)
  - Exfoliative rash [Recovered/Resolved]
  - Rash erythematous [Recovered/Resolved]
  - Product administered to patient of inappropriate age [Unknown]
